FAERS Safety Report 7725479-9 (Version None)
Quarter: 2011Q3

REPORT INFORMATION
  Report Type: 
  Country: None (occurrence: None)
  Receive Date: 20110902
  Receipt Date: 20110720
  Transmission Date: 20111222
  Serious: No
  Sender: FDA-Public Use
  Company Number: US-BRISTOL-MYERS SQUIBB COMPANY-15915309

PATIENT
  Age: 4 Decade
  Sex: Female

DRUGS (1)
  1. KOMBIGLYZE XR [Suspect]
     Dosage: 1DF=5/2000. UNIT NOT SPECIFIED.

REACTIONS (1)
  - ABDOMINAL DISTENSION [None]
